FAERS Safety Report 24228617 (Version 2)
Quarter: 2025Q1

REPORT INFORMATION
  Report Type: Spontaneous
  Country: US (occurrence: US)
  Receive Date: 20240820
  Receipt Date: 20250115
  Transmission Date: 20250409
  Serious: No
  Sender: SANOFI AVENTIS
  Company Number: US-SA-2024SA203136

PATIENT
  Age: 64 Year
  Sex: Male

DRUGS (4)
  1. DUPIXENT [Suspect]
     Active Substance: DUPILUMAB
     Indication: Dermatitis atopic
     Dosage: 300 MG, QOW
     Route: 058
     Dates: start: 202406
  2. GABAPENTIN [Concomitant]
     Active Substance: GABAPENTIN
  3. CYCLOBENZAPRINE [Concomitant]
     Active Substance: CYCLOBENZAPRINE
  4. HYDROCHLOROTHIAZIDE [Concomitant]
     Active Substance: HYDROCHLOROTHIAZIDE

REACTIONS (5)
  - Paraesthesia [Not Recovered/Not Resolved]
  - Arthralgia [Recovered/Resolved]
  - Dry skin [Not Recovered/Not Resolved]
  - Drug hypersensitivity [Unknown]
  - Gout [Unknown]

NARRATIVE: CASE EVENT DATE: 20240101
